FAERS Safety Report 5227725-2 (Version None)
Quarter: 2007Q1

REPORT INFORMATION
  Report Type: 
  Country: None (occurrence: None)
  Receive Date: 20070202
  Receipt Date: 20070125
  Transmission Date: 20070707
  Serious: Yes (Other)
  Sender: FDA-Public Use
  Company Number: CA-PFIZER INC-2007007537

PATIENT
  Age: 77 Year
  Sex: Male

DRUGS (1)
  1. LIPITOR [Suspect]
     Route: 048

REACTIONS (5)
  - ANORGASMIA [None]
  - EJACULATION FAILURE [None]
  - MUSCULAR WEAKNESS [None]
  - MYALGIA [None]
  - SEMEN VOLUME ABNORMAL [None]
